FAERS Safety Report 13905959 (Version 1)
Quarter: 2017Q3

REPORT INFORMATION
  Report Type: Spontaneous
  Country: US (occurrence: US)
  Receive Date: 20170825
  Receipt Date: 20170825
  Transmission Date: 20171127
  Serious: Yes (Other)
  Sender: FDA-Public Use
  Company Number: None

PATIENT
  Age: 14 Year
  Sex: Male
  Weight: 59 kg

DRUGS (1)
  1. AMOXICILLIN AND CLAVULANATE POTASSIUM [Suspect]
     Active Substance: AMOXICILLIN\CLAVULANATE POTASSIUM
     Indication: DERMATITIS

REACTIONS (9)
  - Rash pruritic [None]
  - Pain of skin [None]
  - Tachycardia [None]
  - Rash generalised [None]
  - Mucocutaneous rash [None]
  - Rash [None]
  - Rash maculo-papular [None]
  - Skin burning sensation [None]
  - Eye irritation [None]

NARRATIVE: CASE EVENT DATE: 20170824
